FAERS Safety Report 4323231-8 (Version None)
Quarter: 2004Q1

REPORT INFORMATION
  Report Type: 
  Country: None (occurrence: None)
  Receive Date: 20040324
  Receipt Date: 20040324
  Transmission Date: 20041129
  Serious: Yes (Other)
  Sender: FDA-Public Use
  Company Number: None

PATIENT
  Age: 42 Year
  Sex: Female
  Weight: 63.5036 kg

DRUGS (2)
  1. SYNTHROID [Suspect]
     Indication: HORMONE REPLACEMENT THERAPY
     Dosage: 1 DAILY ORAL
     Route: 048
     Dates: start: 20040116, end: 20040319
  2. SYNTHROID [Suspect]
     Dosage: 1  DAILY ORAL
     Route: 048
     Dates: start: 20040116, end: 20040319

REACTIONS (1)
  - HYPOTHYROIDISM [None]
